FAERS Safety Report 5890023-8 (Version None)
Quarter: 2008Q3

REPORT INFORMATION
  Report Type: 
  Country: None (occurrence: None)
  Receive Date: 20080919
  Receipt Date: 20080915
  Transmission Date: 20090109
  Serious: Yes (Other)
  Sender: FDA-Public Use
  Company Number: US-PFIZER INC-2008049607

PATIENT
  Sex: Female
  Weight: 68 kg

DRUGS (1)
  1. DEPO-MEDROL [Suspect]
     Indication: RHEUMATOID ARTHRITIS

REACTIONS (5)
  - ARTHROPATHY [None]
  - CARDIAC VALVE DISEASE [None]
  - HYPOAESTHESIA [None]
  - OCULAR SARCOIDOSIS [None]
  - RHEUMATOID ARTHRITIS [None]
